FAERS Safety Report 5489434-4 (Version None)
Quarter: 2007Q4

REPORT INFORMATION
  Report Type: 
  Country: None (occurrence: None)
  Receive Date: 20071018
  Receipt Date: 20071004
  Transmission Date: 20080405
  Serious: Yes (Other)
  Sender: FDA-Public Use
  Company Number: FR-GENENTECH-249019

PATIENT
  Sex: Male
  Weight: 114 kg

DRUGS (9)
  1. XOLAIR [Suspect]
     Indication: ASTHMA
     Dosage: 300 MG, 1/MONTH
     Route: 058
     Dates: start: 20060401
  2. SALBUTAMOL [Suspect]
     Indication: ASTHMA
     Dosage: 0-4
     Dates: start: 20070101
  3. ESOMEPRAZOLE [Concomitant]
     Indication: DRUG USE FOR UNKNOWN INDICATION
  4. SINGULAIR [Concomitant]
     Indication: DRUG USE FOR UNKNOWN INDICATION
  5. HYPERIUM [Concomitant]
     Indication: DRUG USE FOR UNKNOWN INDICATION
  6. FLIXOTIDE DISKHALER [Concomitant]
     Indication: DRUG USE FOR UNKNOWN INDICATION
  7. LACIDIPINE [Concomitant]
     Indication: DRUG USE FOR UNKNOWN INDICATION
  8. ZAMADOL [Concomitant]
     Indication: DRUG USE FOR UNKNOWN INDICATION
  9. NASONEX [Concomitant]
     Indication: DRUG USE FOR UNKNOWN INDICATION

REACTIONS (3)
  - ASTHENIA [None]
  - MYALGIA [None]
  - PYREXIA [None]
